FAERS Safety Report 7585386-1 (Version None)
Quarter: 2011Q3

REPORT INFORMATION
  Report Type: 
  Country: None (occurrence: None)
  Receive Date: 20110701
  Receipt Date: 20090226
  Transmission Date: 20111222
  Serious: Yes (Death, Hospitalization, Other)
  Sender: FDA-Public Use
  Company Number: US-BAYER-2011-009654

PATIENT
  Age: 57 Year
  Sex: Female
  Weight: 69.4 kg

DRUGS (23)
  1. LASIX [Concomitant]
     Dosage: 10 MG PRIME
     Route: 042
     Dates: start: 20040204
  2. FENTANYL [Concomitant]
     Dosage: 14 MG, UNK
     Route: 042
  3. HEPARIN [Concomitant]
     Dosage: 1000 U, UNK
     Route: 042
  4. NOREPINEPHRINE BITARTRATE [Concomitant]
     Dosage: UNK
     Route: 042
     Dates: start: 20040203
  5. PACKED RED BLOOD CELLS [Concomitant]
     Dosage: 5 U, UNK
     Route: 042
     Dates: start: 20040204
  6. LASIX [Concomitant]
     Dosage: 40 MG, QD
     Route: 048
  7. LORATADINE [Concomitant]
     Dosage: 10 MG, QD
     Route: 048
  8. RAMIPRIL [Concomitant]
     Dosage: 5 MG, QD
     Route: 048
  9. PLASMA [Concomitant]
     Dosage: 3 U, UNK
     Route: 042
     Dates: start: 20040204
  10. TRASYLOL [Suspect]
     Indication: MITRAL VALVE REPLACEMENT
     Dosage: 1 ML, ONCE, TEST DOSE
     Route: 042
     Dates: start: 20040204, end: 20040204
  11. TRASYLOL [Suspect]
     Dosage: 50ML/HR
     Route: 042
     Dates: start: 20040204, end: 20040205
  12. CARVEDILOL [Concomitant]
     Dosage: 12.5 MG, BID
     Route: 048
  13. ZINACEF [Concomitant]
     Dosage: 1.5 G, TWICE
     Route: 042
     Dates: start: 20040204
  14. TRASYLOL [Suspect]
     Indication: INTRA-THORACIC AORTIC ANEURYSM REPAIR
     Dosage: 1ML ONCE TEST DOSE
     Route: 042
     Dates: start: 20040204, end: 20040205
  15. LANSOPRAZOLE [Concomitant]
     Dosage: 30 MG, QD
     Route: 048
  16. POTASSIUM [Concomitant]
     Dosage: 20 MG, QD
     Route: 048
  17. PLATELETS [Concomitant]
     Dosage: 2
     Route: 042
     Dates: start: 20040204
  18. TRASYLOL [Suspect]
     Dosage: 200 ML BOLUS ONCE
     Route: 042
     Dates: start: 20040204
  19. KEFZOL [Concomitant]
     Dosage: 2.5 G, UNK
     Route: 042
  20. ACETYLSALICYLIC ACID SRT [Concomitant]
     Dosage: 81 MG, QD
     Route: 048
  21. HEPARIN [Concomitant]
     Dosage: 25000 U
     Route: 042
  22. PROTAMINE SULFATE [Concomitant]
     Dosage: 7 ML, UNK
     Route: 042
  23. TRASYLOL [Suspect]
     Indication: AORTIC ANEURYSM REPAIR
     Dosage: 200ML OVER 30 MINUTES
     Route: 042
     Dates: start: 20040204, end: 20040204

REACTIONS (12)
  - DEATH [None]
  - STRESS [None]
  - INJURY [None]
  - RENAL FAILURE [None]
  - ANXIETY [None]
  - MULTI-ORGAN FAILURE [None]
  - PAIN [None]
  - RENAL INJURY [None]
  - FEAR [None]
  - RENAL IMPAIRMENT [None]
  - EMOTIONAL DISTRESS [None]
  - UNEVALUABLE EVENT [None]
